FAERS Safety Report 8318360-8 (Version None)
Quarter: 2012Q2

REPORT INFORMATION
  Report Type: 
  Country: None (occurrence: None)
  Receive Date: 20120425
  Receipt Date: 20120409
  Transmission Date: 20120825
  Serious: Yes (Hospitalization)
  Sender: FDA-Public Use
  Company Number: 2012MA004865

PATIENT

DRUGS (5)
  1. TEGRETOL [Concomitant]
  2. DECTANYL [Concomitant]
  3. FLORINEL [Concomitant]
  4. HYDROCORTISONE [Concomitant]
  5. CARBAMAZEPINE [Suspect]
     Indication: EPILEPSY

REACTIONS (5)
  - GASTROINTESTINAL DISORDER [None]
  - HYPERKALAEMIA [None]
  - BLOOD CORTICOTROPHIN INCREASED [None]
  - PRODUCT SUBSTITUTION ISSUE [None]
  - HYPONATRAEMIA [None]
